FAERS Safety Report 9157711 (Version 1)
Quarter: 2013Q1

REPORT INFORMATION
  Report Type: Spontaneous
  Country: DK (occurrence: None)
  Receive Date: 20130213
  Receipt Date: 20130213
  Transmission Date: 20140127
  Serious: Yes (Hospitalization)
  Sender: FDA-Public Use
  Company Number: 2013MA000926

PATIENT
  Sex: Male

DRUGS (3)
  1. KADIAN [Suspect]
  2. AMITRIPTYLINE (AMITRIPTYLINE) [Suspect]
  3. TILODENE [Suspect]

REACTIONS (2)
  - Decreased appetite [None]
  - Neuralgia [None]
